FAERS Safety Report 19147018 (Version 1)
Quarter: 2021Q2

REPORT INFORMATION
  Report Type: Report from Study
  Country: US (occurrence: US)
  Receive Date: 20210416
  Receipt Date: 20210416
  Transmission Date: 20210717
  Serious: Yes (Death)
  Sender: FDA-Public Use
  Company Number: US-PFIZER INC-2021417777

PATIENT

DRUGS (15)
  1. DEXAMETHASONE. [Suspect]
     Active Substance: DEXAMETHASONE
     Indication: BURKITT^S LEUKAEMIA
     Dosage: 40 MG, CYCLIC (DAILY EITHER ORALLY OR IV ON DAYS 1 TO 4 AND DAYS 11 TO 14 OF COURSES 1, 3, 5, AND 7)
  2. CALCIUM LEUCOVORIN [Concomitant]
     Active Substance: LEUCOVORIN CALCIUM
     Dosage: 15 MG, EVERY 6 HOURS FOR EIGHT DOSES
     Route: 042
  3. MESNA. [Concomitant]
     Active Substance: MESNA
     Dosage: 600 MG/M2, CYCLIC (CONTINUOUS INFUSION ON DAYS 1 TO 3 BEGINNING 1 HOUR...)
     Route: 042
  4. SODIUM BICARBONATE. [Concomitant]
     Active Substance: SODIUM BICARBONATE
     Dosage: IV FORMULATION WAS SUPPLEMENTED WITH ORAL SODIUM BICARBONATE ON DAYS 1 TO 3
  5. FLUCONAZOLE. [Concomitant]
     Active Substance: FLUCONAZOLE
     Indication: ANTIFUNGAL PROPHYLAXIS
     Dosage: 200 MG, DAILY
  6. CYCLOPHOSPHAMIDE. [Suspect]
     Active Substance: CYCLOPHOSPHAMIDE
     Indication: BURKITT^S LEUKAEMIA
     Dosage: 300 MG/M2, CYCLIC (OVER 2 HOURS EVERY 12 HOURS FOR SIX DOSES ON DAYS 1?3 OF COURSES 1, 3, 5, AND 7)
     Route: 042
  7. ALLOPURINOL. [Concomitant]
     Active Substance: ALLOPURINOL
     Indication: PROPHYLAXIS
     Dosage: UNK
  8. DOXORUBICIN HCL [Suspect]
     Active Substance: DOXORUBICIN HYDROCHLORIDE
     Indication: BURKITT^S LEUKAEMIA
     Dosage: 50 MG/M2, CYCLIC (OVER 2 HOURS VIA CENTRAL VENOUS CATHETER ON DAY 4 OF COURSES 1, 3, 5, AND 7)
     Route: 042
  9. MTX [METHOTREXATE SODIUM] [Concomitant]
     Active Substance: METHOTREXATE SODIUM
     Indication: PROPHYLAXIS
     Dosage: 12 MG (6 MG ONLY VIA OMMAYA) ON DAY 2
     Route: 037
  10. FUROSEMIDE. [Concomitant]
     Active Substance: FUROSEMIDE
     Indication: DIURETIC THERAPY
     Dosage: UNK
  11. ARA?C [Concomitant]
     Active Substance: CYTARABINE
     Indication: PROPHYLAXIS
     Dosage: 100MG, ON DAY 7 OF EACH COURSE FOR ALL EIGHT COURSES
  12. VINCRISTINE SULFATE. [Suspect]
     Active Substance: VINCRISTINE SULFATE
     Indication: BURKITT^S LEUKAEMIA
     Dosage: 2 MG, CYCLIC (ON DAYS 4 AND 11 OF COURSES 1, 3, 5, AND 7)
     Route: 042
  13. METHOTREXATE SODIUM. [Suspect]
     Active Substance: METHOTREXATE SODIUM
     Indication: BURKITT^S LEUKAEMIA
     Dosage: 1 G/M2 IV OVER 24 HOURS ON DAY 1 OF COURSES 2, 4, 6, AND 8
     Route: 042
  14. CALCIUM LEUCOVORIN [Concomitant]
     Active Substance: LEUCOVORIN CALCIUM
     Dosage: 50 MG, STARTING 12 HOURS AFTER THE COMPLETION OF MTX
     Route: 042
  15. CYTARABINE. [Suspect]
     Active Substance: CYTARABINE
     Indication: BURKITT^S LEUKAEMIA
     Dosage: 3 G/M2 OVER 2 HOURS EVERY 12 HOURS FOR FOUR DOSES ON DAYS 2 AND 3 OF COURSES 2, 4, 6, AND 8

REACTIONS (4)
  - Myelosuppression [Fatal]
  - Sepsis [Fatal]
  - Systemic candida [Fatal]
  - Multiple organ dysfunction syndrome [Fatal]
